FAERS Safety Report 19942123 (Version 1)
Quarter: 2021Q4

REPORT INFORMATION
  Report Type: Spontaneous
  Country: US (occurrence: US)
  Receive Date: 20211011
  Receipt Date: 20211011
  Transmission Date: 20220303
  Serious: Yes (Other)
  Sender: FDA-Public Use
  Company Number: None

PATIENT
  Age: 30 Year
  Sex: Female
  Weight: 49.5 kg

DRUGS (3)
  1. CEFADROXIL [Suspect]
     Active Substance: CEFADROXIL
     Indication: Antibiotic therapy
     Dosage: ?          QUANTITY:30 CAPSULE(S);
     Route: 048
     Dates: start: 20210908, end: 20210914
  2. CEFADROXIL [Suspect]
     Active Substance: CEFADROXIL
     Indication: Skin disorder
  3. OMEPRAZOLE [Concomitant]
     Active Substance: OMEPRAZOLE

REACTIONS (9)
  - Myalgia [None]
  - Impaired work ability [None]
  - Restlessness [None]
  - Hypersensitivity [None]
  - Crying [None]
  - Drug ineffective [None]
  - Headache [None]
  - Muscle spasms [None]
  - Drug intolerance [None]

NARRATIVE: CASE EVENT DATE: 20210908
